FAERS Safety Report 7991598-5 (Version None)
Quarter: 2011Q4

REPORT INFORMATION
  Report Type: 
  Country: None (occurrence: None)
  Receive Date: 20111219
  Receipt Date: 20111021
  Transmission Date: 20120403
  Serious: No
  Sender: FDA-Public Use
  Company Number: US-ALLERGAN-1113933US

PATIENT
  Age: 61 Year
  Sex: Female
  Weight: 63.492 kg

DRUGS (2)
  1. LUMIGAN [Suspect]
     Indication: GLAUCOMA
     Dosage: 2 GTT, QPM
     Route: 047
     Dates: start: 20110601
  2. BLOOD PRESSURE MEDICINE [Concomitant]
     Indication: BLOOD PRESSURE

REACTIONS (1)
  - EYE PRURITUS [None]
